FAERS Safety Report 9383422 (Version 3)
Quarter: 2013Q4

REPORT INFORMATION
  Report Type: Spontaneous
  Country: JP (occurrence: JP)
  Receive Date: 20130704
  Receipt Date: 20131128
  Transmission Date: 20140711
  Serious: Yes (Death, Other)
  Sender: FDA-Public Use
  Company Number: JP-ROCHE-1242803

PATIENT
  Age: 14 Year
  Sex: Male
  Weight: 48 kg

DRUGS (12)
  1. CELLCEPT [Suspect]
     Indication: NEPHROTIC SYNDROME
     Dosage: DOSAGE IS UNCERTAIN.
     Route: 048
     Dates: start: 20111129, end: 20121105
  2. PREDNISOLONE [Suspect]
     Indication: NEPHROTIC SYNDROME
     Route: 048
  3. PREDNISOLONE [Suspect]
     Dosage: DOSAGE IS UNCERTAIN.
     Route: 048
  4. PREDNISOLONE [Suspect]
     Dosage: 15MG X ONCE  30MG X ONCE
     Route: 048
  5. NEORAL [Suspect]
     Indication: NEPHROTIC SYNDROME
     Route: 048
  6. BAKTAR [Suspect]
     Indication: NEPHROTIC SYNDROME
     Dosage: DOSAGE IS UNCERTAIN.
     Route: 065
  7. TACROLIMUS HYDRATE [Suspect]
     Indication: NEPHROTIC SYNDROME
     Dosage: DOSAGE IS UNCERTAIN.
     Route: 065
  8. MIZORIBINE [Suspect]
     Indication: NEPHROTIC SYNDROME
     Dosage: DOSAGE IS UNCERTAIN.
     Route: 065
  9. METHYLPREDNISOLONE [Concomitant]
     Indication: NEPHROTIC SYNDROME
     Dosage: DOSAGE IS UNCERTAIN.
     Route: 041
  10. ADALAT [Concomitant]
     Indication: NEPHROTIC SYNDROME
     Route: 065
  11. RENIVACE [Concomitant]
     Indication: NEPHROTIC SYNDROME
     Route: 065
  12. BLOPRESS [Concomitant]
     Indication: NEPHROTIC SYNDROME
     Route: 065

REACTIONS (12)
  - Body height below normal [Unknown]
  - Obesity [Unknown]
  - Cataract [Unknown]
  - Bone density decreased [Unknown]
  - Hepatic function abnormal [Unknown]
  - Cardiac hypertrophy [Unknown]
  - Cardiac failure [Unknown]
  - Respiratory failure [Fatal]
  - Acute respiratory distress syndrome [Fatal]
  - Sepsis [Fatal]
  - Pneumocystis jirovecii pneumonia [Fatal]
  - Thrombocytopenia [Unknown]
